FAERS Safety Report 7694275-3 (Version None)
Quarter: 2011Q3

REPORT INFORMATION
  Report Type: 
  Country: None (occurrence: None)
  Receive Date: 20110819
  Receipt Date: 20110810
  Transmission Date: 20111222
  Serious: Yes (Other)
  Sender: FDA-Public Use
  Company Number: BR-GLAXOSMITHKLINE-B0739369A

PATIENT
  Sex: Male
  Weight: 74 kg

DRUGS (7)
  1. PROPAFENONE HCL [Suspect]
     Indication: ARRHYTHMIA
     Dosage: 300MG SEE DOSAGE TEXT
     Route: 048
  2. METFFORMIN HYDROCHLORIDE [Concomitant]
     Indication: DIABETES MELLITUS
     Dosage: 500MG AT NIGHT
     Route: 048
  3. SYMBICORT [Concomitant]
     Dosage: 400MG AT NIGHT
     Route: 048
  4. ATACAND HCT [Concomitant]
     Indication: CARDIAC DISORDER
     Dosage: 1TAB PER DAY
     Route: 048
  5. SPIRIVA [Concomitant]
     Route: 048
  6. OMEPRAZOLE [Concomitant]
     Indication: PROPHYLAXIS
     Dosage: 10MG PER DAY
     Route: 048
  7. PRESSAT [Concomitant]
     Indication: BLOOD PRESSURE
     Dosage: 1TAB PER DAY
     Route: 048

REACTIONS (15)
  - METASTATIC GASTRIC CANCER [None]
  - INCORRECT DOSE ADMINISTERED BY DEVICE [None]
  - DIARRHOEA [None]
  - PROSTATIC DISORDER [None]
  - FATIGUE [None]
  - URINARY INCONTINENCE [None]
  - DYSPEPSIA [None]
  - PROSTATOMEGALY [None]
  - RENAL CYST [None]
  - VOMITING [None]
  - DIABETES MELLITUS [None]
  - GENERALISED OEDEMA [None]
  - WHITE BLOOD CELL COUNT DECREASED [None]
  - WEIGHT DECREASED [None]
  - DECREASED APPETITE [None]
